FAERS Safety Report 23651092 (Version 1)
Quarter: 2024Q1

REPORT INFORMATION
  Report Type: Spontaneous
  Country: US (occurrence: US)
  Receive Date: 20240320
  Receipt Date: 20240320
  Transmission Date: 20240410
  Serious: No
  Sender: FDA-Public Use
  Company Number: US-SANOFI-01976829

PATIENT
  Sex: Male

DRUGS (4)
  1. DUPIXENT [Suspect]
     Active Substance: DUPILUMAB
     Dosage: UNK
  2. SINGULAIR [Concomitant]
     Active Substance: MONTELUKAST SODIUM
     Indication: Seasonal allergy
  3. CETIRIZINE [Concomitant]
     Active Substance: CETIRIZINE HYDROCHLORIDE
  4. FAMOTIDINE [Concomitant]
     Active Substance: FAMOTIDINE

REACTIONS (9)
  - Pharyngeal swelling [Unknown]
  - Cough [Unknown]
  - Tongue disorder [Unknown]
  - Lymphadenopathy [Unknown]
  - Glossodynia [Unknown]
  - Dysphonia [Unknown]
  - Mobility decreased [Unknown]
  - Nasopharyngitis [Unknown]
  - Oropharyngeal pain [Unknown]
